FAERS Safety Report 5796431 (Version 5)
Quarter: 2015Q2

REPORT INFORMATION
  Report Type: Report from Study
  Country: US (occurrence: US)
  Receive Date: 20050505
  Receipt Date: 20150508
  Transmission Date: 20150821
  Serious: Yes (Death, Hospitalization)
  Sender: FDA-Public Use
  Company Number: 2005BI006722

PATIENT
  Age: 33 Year
  Sex: Female

DRUGS (1)
  1. TYSABRI [Suspect]
     Active Substance: NATALIZUMAB
     Indication: MULTIPLE SCLEROSIS
     Route: 042
     Dates: start: 20050112, end: 200502

REACTIONS (8)
  - Neuromyelitis optica [Fatal]
  - Pyrexia [Unknown]
  - Quadriparesis [Unknown]
  - Dysuria [Unknown]
  - Urticaria [Recovered/Resolved]
  - Urinary tract infection [Fatal]
  - Multiple sclerosis relapse [Unknown]
  - Rash [Recovered/Resolved]

NARRATIVE: CASE EVENT DATE: 2005
